FAERS Safety Report 15563075 (Version 1)
Quarter: 2018Q4

REPORT INFORMATION
  Report Type: Spontaneous
  Country: FR (occurrence: FR)
  Receive Date: 20181029
  Receipt Date: 20181029
  Transmission Date: 20190205
  Serious: Yes (Other)
  Sender: FDA-Public Use
  Company Number: FR-JNJFOC-20181036949

PATIENT
  Age: 20 Year
  Sex: Female

DRUGS (1)
  1. TREVICTA [Suspect]
     Active Substance: PALIPERIDONE PALMITATE
     Indication: PRODUCT USED FOR UNKNOWN INDICATION
     Route: 030

REACTIONS (4)
  - Malaise [Unknown]
  - Loss of consciousness [Unknown]
  - Dizziness [Unknown]
  - Symptom recurrence [Unknown]
